FAERS Safety Report 8112245-8 (Version None)
Quarter: 2012Q1

REPORT INFORMATION
  Report Type: 
  Country: None (occurrence: None)
  Receive Date: 20120203
  Receipt Date: 20120124
  Transmission Date: 20120608
  Serious: Yes (Hospitalization)
  Sender: FDA-Public Use
  Company Number: US-SANOFI-AVENTIS-2012SA005158

PATIENT
  Age: 61 Year
  Sex: Female
  Weight: 168 kg

DRUGS (7)
  1. FLUOROURACIL [Suspect]
     Indication: COLON CANCER
     Dosage: DOSE: 2400 MG/M2 IV OVER 46-48 HOURS ON DAY 1
     Route: 042
     Dates: start: 20110802, end: 20110927
  2. OXALIPLATIN [Suspect]
     Indication: COLON CANCER
     Route: 042
     Dates: start: 20110802, end: 20110927
  3. PROCHLORPERAZINE [Suspect]
     Indication: VOMITING
     Route: 065
  4. FLUOROURACIL [Suspect]
     Route: 040
     Dates: start: 20110802, end: 20110927
  5. LEUCOVORIN CALCIUM [Suspect]
     Indication: COLON CANCER
     Route: 042
     Dates: start: 20110802, end: 20110927
  6. PROCHLORPERAZINE [Suspect]
     Indication: NAUSEA
     Route: 065
  7. CELECOXIB [Suspect]
     Indication: COLON CANCER
     Route: 048
     Dates: start: 20110802, end: 20111011

REACTIONS (1)
  - ELECTROCARDIOGRAM QT PROLONGED [None]
